FAERS Safety Report 23577092 (Version 2)
Quarter: 2024Q3

REPORT INFORMATION
  Report Type: Report from Study
  Country: DE (occurrence: DE)
  Receive Date: 20240228
  Receipt Date: 20240723
  Transmission Date: 20241017
  Serious: Yes (Congenital Anomaly, Other)
  Sender: GILEAD
  Company Number: DE-GILEAD-2024-0663263

PATIENT
  Age: 0 Year
  Sex: Male
  Weight: 2.9 kg

DRUGS (2)
  1. TENOFOVIR DISOPROXIL FUMARATE [Suspect]
     Active Substance: TENOFOVIR DISOPROXIL FUMARATE
     Indication: HIV infection
     Dosage: 445 MG, QD
     Route: 064
     Dates: start: 20231114
  2. TIVICAY [Suspect]
     Active Substance: DOLUTEGRAVIR SODIUM
     Indication: HIV infection
     Dosage: 50 MG, QD
     Route: 064
     Dates: start: 20231114

REACTIONS (7)
  - Trisomy 21 [Unknown]
  - Ultrasound antenatal screen abnormal [Unknown]
  - Abnormal palmar/plantar creases [Unknown]
  - Foot deformity [Unknown]
  - Macroglossia [Unknown]
  - Prominent epicanthal folds [Unknown]
  - Foetal exposure during pregnancy [Recovered/Resolved]

NARRATIVE: CASE EVENT DATE: 20240219
